FAERS Safety Report 5061765-1 (Version None)
Quarter: 2006Q3

REPORT INFORMATION
  Report Type: 
  Country: None (occurrence: None)
  Receive Date: 20060726
  Receipt Date: 20060224
  Transmission Date: 20061208
  Serious: No
  Sender: FDA-Public Use
  Company Number: S2006US02743

PATIENT
  Sex: Male

DRUGS (3)
  1. TRIAMTERENE AND HYDROCHLOROTHIAZIDE [Suspect]
     Indication: DRUG USE FOR UNKNOWN INDICATION
     Route: 048
  2. VERAPAMIL [Suspect]
     Indication: DRUG USE FOR UNKNOWN INDICATION
     Dosage: 240MG UNKNOWN
     Route: 065
  3. ATENOLOL [Suspect]
     Indication: DRUG USE FOR UNKNOWN INDICATION
     Route: 065

REACTIONS (1)
  - BLOOD PRESSURE FLUCTUATION [None]
